FAERS Safety Report 25573692 (Version 1)
Quarter: 2025Q3

REPORT INFORMATION
  Report Type: Spontaneous
  Country: US (occurrence: None)
  Receive Date: 20250717
  Receipt Date: 20250717
  Transmission Date: 20251021
  Serious: Yes (Other)
  Sender: FDA-CTU
  Company Number: None

PATIENT
  Age: 78 Year
  Sex: Female
  Weight: 58.5 kg

DRUGS (7)
  1. ALENDRONATE [Suspect]
     Active Substance: ALENDRONATE SODIUM
     Indication: Osteoporosis
     Dosage: FREQUENCY : WEEKLY;?
     Route: 048
     Dates: start: 20250528, end: 20250713
  2. ATORVASTATIN [Concomitant]
     Active Substance: ATORVASTATIN
  3. BUSPIRONE [Concomitant]
     Active Substance: BUSPIRONE HYDROCHLORIDE
  4. AMLODIPINE [Concomitant]
     Active Substance: AMLODIPINE BESYLATE
  5. GLUCOSAMINE [Concomitant]
     Active Substance: GLUCOSAMINE
  6. B12 [Concomitant]
  7. VITAMIN D3 [Concomitant]
     Active Substance: CHOLECALCIFEROL

REACTIONS (5)
  - Arthralgia [None]
  - Dizziness [None]
  - Gastrooesophageal reflux disease [None]
  - Dry mouth [None]
  - Vision blurred [None]

NARRATIVE: CASE EVENT DATE: 20250712
